FAERS Safety Report 10067165 (Version 1)
Quarter: 2014Q2

REPORT INFORMATION
  Report Type: Spontaneous
  Country: US (occurrence: None)
  Receive Date: 20140408
  Receipt Date: 20140408
  Transmission Date: 20141212
  Serious: Yes (Disabling)
  Sender: FDA-Public Use
  Company Number: None

PATIENT
  Age: 33 Year
  Sex: Female
  Weight: 52.16 kg

DRUGS (1)
  1. LINDANE [Suspect]
     Dosage: 4 OUNCES TWICE HEAD FOR 4 MINUTES

REACTIONS (7)
  - Drug dispensing error [None]
  - Alopecia [None]
  - Headache [None]
  - Migraine [None]
  - Memory impairment [None]
  - Attention deficit/hyperactivity disorder [None]
  - Loss of employment [None]
